FAERS Safety Report 5633176-9 (Version None)
Quarter: 2008Q1

REPORT INFORMATION
  Report Type: 
  Country: None (occurrence: None)
  Receive Date: 20080221
  Receipt Date: 20080213
  Transmission Date: 20080703
  Serious: Yes (Hospitalization, Other)
  Sender: FDA-Public Use
  Company Number: DE-ABBOTT-07P-062-0425135-00

PATIENT
  Sex: Male
  Weight: 66 kg

DRUGS (3)
  1. HUMIRA [Suspect]
     Indication: CROHN'S DISEASE
     Route: 058
     Dates: start: 20070914, end: 20071101
  2. OYSTER SHELL CALCIUM WITH VITAMIN D [Concomitant]
     Indication: DRUG USE FOR UNKNOWN INDICATION
     Route: 048
  3. BIOSORB (ENTERAL NUTRITION) [Concomitant]
     Indication: CROHN'S DISEASE
     Route: 048

REACTIONS (5)
  - ABSCESS INTESTINAL [None]
  - CONDITION AGGRAVATED [None]
  - FEBRILE INFECTION [None]
  - INTESTINAL FISTULA [None]
  - NIGHT SWEATS [None]
